FAERS Safety Report 10535130 (Version 1)
Quarter: 2014Q4

REPORT INFORMATION
  Report Type: Spontaneous
  Country: AT (occurrence: AT)
  Receive Date: 20141022
  Receipt Date: 20141022
  Transmission Date: 20150529
  Serious: Yes (Death, Other)
  Sender: FDA-Public Use
  Company Number: AT-GLAXOSMITHKLINE-AT2014GSK005674

PATIENT
  Age: 60 Year
  Sex: Male

DRUGS (2)
  1. RITUXIMAB [Suspect]
     Active Substance: RITUXIMAB
     Indication: CHRONIC LYMPHOCYTIC LEUKAEMIA
     Dosage: UNK
  2. ARZERRA [Suspect]
     Active Substance: OFATUMUMAB
     Dosage: 300 MG, UNK
     Dates: start: 201408

REACTIONS (2)
  - Pneumonia [Fatal]
  - Chronic lymphocytic leukaemia [Unknown]
